FAERS Safety Report 16386655 (Version 2)
Quarter: 2019Q3

REPORT INFORMATION
  Report Type: Report from Study
  Country: JP (occurrence: JP)
  Receive Date: 20190604
  Receipt Date: 20190726
  Transmission Date: 20191004
  Serious: Yes (Death, Hospitalization)
  Sender: FDA-Public Use
  Company Number: JP-AMGEN-JPNCT2019064476

PATIENT
  Age: 86 Year
  Sex: Male

DRUGS (14)
  1. DARBEPOETIN ALFA [Suspect]
     Active Substance: DARBEPOETIN ALFA
     Dosage: 5 MICROGRAM, Q2WK
     Route: 065
     Dates: start: 20180919, end: 20190401
  2. METLIGINE [Concomitant]
     Active Substance: MIDODRINE HYDROCHLORIDE
     Indication: CARDIAC FAILURE
     Dosage: 2 MILLIGRAM, QD
     Route: 048
     Dates: start: 20190315
  3. BAYASPIRIN [Concomitant]
     Active Substance: ASPIRIN
     Indication: MYOCARDIAL INFARCTION
  4. DARBEPOETIN ALFA [Suspect]
     Active Substance: DARBEPOETIN ALFA
     Dosage: 15 MICROGRAM, Q2WK
     Route: 065
     Dates: start: 20180723, end: 20180820
  5. TRAZENTA [Concomitant]
     Active Substance: LINAGLIPTIN
     Indication: TYPE 2 DIABETES MELLITUS
     Dosage: 5 MILLIGRAM, QD
     Route: 048
     Dates: end: 20190418
  6. PRINK [Concomitant]
     Active Substance: ALPROSTADIL
     Indication: PERIPHERAL ARTERIAL OCCLUSIVE DISEASE
  7. AMEZINIUM METILSULFATE [Concomitant]
     Active Substance: AMEZINIUM METILSULFATE
     Indication: PROPHYLAXIS
     Dosage: 10 MG, BEFORE DIALYSIS
     Route: 048
     Dates: end: 20190501
  8. BAYASPIRIN [Concomitant]
     Active Substance: ASPIRIN
     Indication: MYOCARDIAL INFARCTION
     Dosage: 100 MILLIGRAM, QD
     Route: 048
     Dates: end: 20190418
  9. DARBEPOETIN ALFA [Suspect]
     Active Substance: DARBEPOETIN ALFA
     Dosage: 10 MICROGRAM
     Route: 065
     Dates: start: 20180903, end: 20180903
  10. TAKECAB [Concomitant]
     Active Substance: VONOPRAZAN FUMURATE
     Indication: PROPHYLAXIS AGAINST GASTROINTESTINAL ULCER
     Dosage: 10 MILLIGRAM, QD
     Route: 048
  11. DARBEPOETIN ALFA [Suspect]
     Active Substance: DARBEPOETIN ALFA
     Indication: NEPHROGENIC ANAEMIA
     Dosage: 10 MICROGRAM, QWK
     Route: 065
     Dates: start: 20180611, end: 20180618
  12. PRINK [Concomitant]
     Active Substance: ALPROSTADIL
     Indication: PERIPHERAL ARTERIAL OCCLUSIVE DISEASE
     Dosage: 10 UG, AT THE TIME OF DIALYSIS
     Route: 041
     Dates: start: 20180822, end: 20190501
  13. DARBEPOETIN ALFA [Suspect]
     Active Substance: DARBEPOETIN ALFA
     Dosage: 20 MICROGRAM, Q2WK
     Route: 065
     Dates: start: 20180625, end: 20180709
  14. CRESTOR [Concomitant]
     Active Substance: ROSUVASTATIN CALCIUM
     Indication: DYSLIPIDAEMIA
     Dosage: 2.5 MILLIGRAM, QD
     Route: 048
     Dates: end: 20190513

REACTIONS (2)
  - Ventricular fibrillation [Fatal]
  - Dialysis related complication [Recovering/Resolving]

NARRATIVE: CASE EVENT DATE: 20190415
